FAERS Safety Report 15248393 (Version 1)
Quarter: 2018Q3

REPORT INFORMATION
  Report Type: Spontaneous
  Country: US (occurrence: US)
  Receive Date: 20180715
  Receipt Date: 20180715
  Transmission Date: 20181010
  Serious: No
  Sender: FDA-Public Use
  Company Number: None

PATIENT
  Age: 63 Year
  Sex: Male
  Weight: 69.75 kg

DRUGS (9)
  1. DILTIAZEM. [Concomitant]
     Active Substance: DILTIAZEM
  2. AZYTHROMYCIN [Suspect]
     Active Substance: AZITHROMYCIN ANHYDROUS
     Indication: CHLAMYDIAL INFECTION
     Dosage: ?          QUANTITY:2 TABLET(S);OTHER FREQUENCY:ONCE;?
     Route: 048
     Dates: start: 20180629, end: 20180629
  3. SELENIUM [Concomitant]
     Active Substance: SELENIUM
  4. COENZYME Q10 [Concomitant]
     Active Substance: UBIDECARENONE
  5. KLONOPIN [Concomitant]
     Active Substance: CLONAZEPAM
  6. NALTREXONE [Concomitant]
     Active Substance: NALTREXONE
  7. MULTI VITAMIN [Concomitant]
     Active Substance: VITAMINS
  8. FISH OIL [Concomitant]
     Active Substance: FISH OIL
  9. VITAMIN D3 [Concomitant]
     Active Substance: CHOLECALCIFEROL

REACTIONS (8)
  - Abdominal discomfort [None]
  - Vomiting [None]
  - Decreased appetite [None]
  - Diarrhoea [None]
  - Malaise [None]
  - Insomnia [None]
  - Dehydration [None]
  - Heart rate increased [None]

NARRATIVE: CASE EVENT DATE: 20180629
